FAERS Safety Report 8572869-0 (Version None)
Quarter: 2012Q3

REPORT INFORMATION
  Report Type: 
  Country: None (occurrence: None)
  Receive Date: 20120806
  Receipt Date: 20120724
  Transmission Date: 20120928
  Serious: Yes (Hospitalization)
  Sender: FDA-Public Use
  Company Number: CH-009507513-1207CHE010545

PATIENT

DRUGS (4)
  1. TIMOPTIC [Suspect]
     Dosage: 1 DF, BID
     Route: 047
     Dates: start: 20120301
  2. LISINOPRIL [Concomitant]
     Dosage: 20 MG, ONCE
     Route: 048
  3. METOPROLOL TARTRATE [Suspect]
     Indication: HYPERTENSION
     Dosage: 100 MG, ONCE
     Route: 048
  4. HYDROCHLOROTHIAZDE TAB [Suspect]
     Indication: HYPERTENSION
     Dosage: 12.5 MG, QD
     Route: 048

REACTIONS (12)
  - DRUG ADMINISTRATION ERROR [None]
  - FEELING HOT [None]
  - MALAISE [None]
  - HYPERTENSION [None]
  - EXERCISE TOLERANCE DECREASED [None]
  - BRADYCARDIA [None]
  - OEDEMA PERIPHERAL [None]
  - VENOUS INSUFFICIENCY [None]
  - TYPE 2 DIABETES MELLITUS [None]
  - ATRIOVENTRICULAR BLOCK COMPLETE [None]
  - HEAD DISCOMFORT [None]
  - PRERENAL FAILURE [None]
